FAERS Safety Report 8066251-2 (Version None)
Quarter: 2012Q1

REPORT INFORMATION
  Report Type: 
  Country: None (occurrence: None)
  Receive Date: 20120124
  Receipt Date: 20110106
  Transmission Date: 20120608
  Serious: Yes (Death)
  Sender: FDA-Public Use
  Company Number: US-JNJFOC-20110101796

PATIENT
  Age: 34 Year
  Sex: Female

DRUGS (8)
  1. HYDROCHLOROTHIAZIDE W/METOPROLOL TARTRATE [Suspect]
     Indication: SUICIDE ATTEMPT
  2. LORAZEPAM [Suspect]
     Indication: SUICIDE ATTEMPT
  3. BENZODIAZEPINE NOS [Suspect]
     Indication: SUICIDE ATTEMPT
  4. FLUOXETINE [Suspect]
     Indication: SUICIDE ATTEMPT
  5. SODIUM BICARBONATE [Suspect]
     Indication: SUICIDE ATTEMPT
  6. AMPHETAMINES [Suspect]
     Indication: SUICIDE ATTEMPT
  7. PARACETAMOL/DIPHENHYDRAMINE [Suspect]
     Indication: PRODUCT USED FOR UNKNOWN INDICATION
  8. ZOLPIDEM [Suspect]
     Indication: SUICIDE ATTEMPT

REACTIONS (1)
  - TOXICITY TO VARIOUS AGENTS [None]
